FAERS Safety Report 23014501 (Version 11)
Quarter: 2025Q2

REPORT INFORMATION
  Report Type: Report from Study
  Country: CA (occurrence: CA)
  Receive Date: 20231002
  Receipt Date: 20250604
  Transmission Date: 20250716
  Serious: Yes (Hospitalization, Other)
  Sender: TAKEDA
  Company Number: CA-TAKEDA-2023TUS093768

PATIENT
  Age: 72 Year
  Sex: Female

DRUGS (47)
  1. VEDOLIZUMAB [Suspect]
     Active Substance: VEDOLIZUMAB
     Indication: Crohn^s disease
  2. VEDOLIZUMAB [Suspect]
     Active Substance: VEDOLIZUMAB
     Dosage: 300 MILLIGRAM, Q4WEEKS
     Dates: start: 20161012
  3. VEDOLIZUMAB [Suspect]
     Active Substance: VEDOLIZUMAB
     Dosage: 300 MILLIGRAM, Q4WEEKS
  4. VEDOLIZUMAB [Suspect]
     Active Substance: VEDOLIZUMAB
     Dosage: 300 MILLIGRAM, Q4WEEKS
  5. VEDOLIZUMAB [Suspect]
     Active Substance: VEDOLIZUMAB
     Dosage: 300 MILLIGRAM, Q4WEEKS
  6. VEDOLIZUMAB [Suspect]
     Active Substance: VEDOLIZUMAB
     Dosage: 300 MILLIGRAM, Q4WEEKS
  7. VEDOLIZUMAB [Suspect]
     Active Substance: VEDOLIZUMAB
     Dosage: 300 MILLIGRAM, Q4WEEKS
  8. VEDOLIZUMAB [Suspect]
     Active Substance: VEDOLIZUMAB
     Dosage: 300 MILLIGRAM, Q4WEEKS
  9. VEDOLIZUMAB [Suspect]
     Active Substance: VEDOLIZUMAB
     Dosage: 300 MILLIGRAM, Q4WEEKS
  10. VEDOLIZUMAB [Suspect]
     Active Substance: VEDOLIZUMAB
     Dosage: 300 MILLIGRAM, Q4WEEKS
  11. VEDOLIZUMAB [Suspect]
     Active Substance: VEDOLIZUMAB
     Dosage: 300 MILLIGRAM, Q4WEEKS
  12. VEDOLIZUMAB [Suspect]
     Active Substance: VEDOLIZUMAB
     Dosage: 300 MILLIGRAM, Q4WEEKS
  13. VEDOLIZUMAB [Suspect]
     Active Substance: VEDOLIZUMAB
     Dosage: 300 MILLIGRAM, Q4WEEKS
  14. VEDOLIZUMAB [Suspect]
     Active Substance: VEDOLIZUMAB
     Dosage: 300 MILLIGRAM, Q4WEEKS
  15. VEDOLIZUMAB [Suspect]
     Active Substance: VEDOLIZUMAB
     Dosage: 300 MILLIGRAM, Q4WEEKS
  16. VEDOLIZUMAB [Suspect]
     Active Substance: VEDOLIZUMAB
     Dosage: 300 MILLIGRAM, Q4WEEKS
  17. VEDOLIZUMAB [Suspect]
     Active Substance: VEDOLIZUMAB
     Dosage: 300 MILLIGRAM, Q4WEEKS
  18. VEDOLIZUMAB [Suspect]
     Active Substance: VEDOLIZUMAB
     Dosage: 300 MILLIGRAM, Q4WEEKS
  19. VEDOLIZUMAB [Suspect]
     Active Substance: VEDOLIZUMAB
     Dosage: 300 MILLIGRAM, Q4WEEKS
  20. PANTOPRAZOLE SODIUM [Suspect]
     Active Substance: PANTOPRAZOLE SODIUM
     Indication: Product used for unknown indication
  21. ATENOLOL [Concomitant]
     Active Substance: ATENOLOL
  22. ATACAND [Concomitant]
     Active Substance: CANDESARTAN CILEXETIL
  23. Gen-indapamide [Concomitant]
  24. ACETAMINOPHEN [Concomitant]
     Active Substance: ACETAMINOPHEN
     Indication: Premedication
  25. APIXABAN [Concomitant]
     Active Substance: APIXABAN
  26. ASCORBIC ACID [Concomitant]
     Active Substance: ASCORBIC ACID
  27. LIPITOR [Concomitant]
     Active Substance: ATORVASTATIN CALCIUM
  28. BISOPROLOL [Concomitant]
     Active Substance: BISOPROLOL
  29. SYMBICORT [Concomitant]
     Active Substance: BUDESONIDE\FORMOTEROL FUMARATE DIHYDRATE
  30. CALCIUM [Concomitant]
     Active Substance: CALCIUM
  31. B12 [Concomitant]
  32. FOLIC ACID [Concomitant]
     Active Substance: FOLIC ACID
  33. NORVASC [Concomitant]
     Active Substance: AMLODIPINE BESYLATE
  34. METHOTREXATE [Concomitant]
     Active Substance: METHOTREXATE
  35. POTASSIUM [Concomitant]
     Active Substance: POTASSIUM
  36. PREGABALIN [Concomitant]
     Active Substance: PREGABALIN
  37. VITAMIN D [Concomitant]
     Active Substance: VITAMIN D NOS
  38. MAGNESIUM OXIDE [Concomitant]
     Active Substance: MAGNESIUM OXIDE
  39. ZINC [Concomitant]
     Active Substance: ZINC
  40. ENTOCORT [Concomitant]
     Active Substance: BUDESONIDE
  41. PULMICORT TURBUHALER [Concomitant]
     Active Substance: BUDESONIDE
  42. BRICANYL [Concomitant]
     Active Substance: TERBUTALINE SULFATE
  43. BRICANYL [Concomitant]
     Active Substance: TERBUTALINE SULFATE
  44. SPIRIVA [Concomitant]
     Active Substance: TIOTROPIUM BROMIDE MONOHYDRATE
  45. LASIX [Concomitant]
     Active Substance: FUROSEMIDE
  46. INSULIN NOS [Concomitant]
     Active Substance: INSULIN NOS
  47. METFORMIN [Concomitant]
     Active Substance: METFORMIN HYDROCHLORIDE

REACTIONS (20)
  - Mobility decreased [Unknown]
  - Disturbance in attention [Unknown]
  - Dehydration [Unknown]
  - Malaise [Unknown]
  - Asthenia [Unknown]
  - Osteomyelitis [Unknown]
  - Crohn^s disease [Not Recovered/Not Resolved]
  - Pancreatic failure [Unknown]
  - Renal impairment [Unknown]
  - Graft infection [Unknown]
  - Upper gastrointestinal haemorrhage [Unknown]
  - Blood glucose increased [Recovered/Resolved with Sequelae]
  - Defaecation urgency [Recovered/Resolved]
  - Diarrhoea [Recovered/Resolved]
  - Frequent bowel movements [Unknown]
  - Abdominal pain [Unknown]
  - Vomiting [Recovered/Resolved]
  - Arthralgia [Unknown]
  - Nausea [Recovered/Resolved]
  - Clumsiness [Not Recovered/Not Resolved]

NARRATIVE: CASE EVENT DATE: 20160902
